FAERS Safety Report 9722970 (Version 2)
Quarter: 2013Q4

REPORT INFORMATION
  Report Type: Spontaneous
  Country: CH (occurrence: CH)
  Receive Date: 20131202
  Receipt Date: 20131202
  Transmission Date: 20140711
  Serious: Yes (Hospitalization)
  Sender: FDA-Public Use
  Company Number: CH-EISAI INC-E2007-01371-SPO-CH

PATIENT
  Sex: Male

DRUGS (9)
  1. FYCOMPA (PERAMPANEL) [Suspect]
     Indication: EPILEPSY
     Route: 048
     Dates: start: 20130905, end: 20130917
  2. FYCOMPA (PERAMPANEL) [Suspect]
     Route: 048
     Dates: start: 20130918, end: 20130923
  3. KEPPRA [Concomitant]
     Indication: EPILEPSY
     Dosage: 2 G
     Route: 048
  4. LAMOTRIGINE [Concomitant]
     Indication: EPILEPSY
     Dosage: 600 MG
     Route: 048
  5. CLOBAZAM [Concomitant]
     Indication: EPILEPSY
     Dosage: 30 MG
     Route: 048
  6. TOPIRAMATE [Concomitant]
     Indication: EPILEPSY
     Dosage: 400 MG
     Route: 048
     Dates: end: 20130904
  7. TOPIRAMATE [Concomitant]
     Dosage: 200 MG
     Route: 048
     Dates: start: 20130905, end: 20130917
  8. TOPIRAMATE [Concomitant]
     Dosage: UNKNOWN
     Route: 048
     Dates: start: 20130923
  9. HYDROCHLORTHIAZIDE/IRBESARTAN [Concomitant]
     Indication: ESSENTIAL HYPERTENSION
     Dosage: UNKNOWN

REACTIONS (6)
  - Orthostatic hypotension [Recovered/Resolved]
  - Malaise [Recovered/Resolved]
  - Visual impairment [Recovered/Resolved]
  - Jaw fracture [Recovered/Resolved]
  - Fall [Recovered/Resolved]
  - Dermatitis allergic [Recovered/Resolved]
